FAERS Safety Report 25915927 (Version 3)
Quarter: 2025Q4

REPORT INFORMATION
  Report Type: Report from Study
  Country: JP (occurrence: JP)
  Receive Date: 20251013
  Receipt Date: 20251030
  Transmission Date: 20260118
  Serious: Yes (Hospitalization, Other)
  Sender: TAKEDA
  Company Number: JP-TAKEDA-2025TJP010229

PATIENT
  Age: 78 Year
  Sex: Female

DRUGS (1)
  1. FRUQUINTINIB [Suspect]
     Active Substance: FRUQUINTINIB
     Indication: Colon cancer metastatic
     Dosage: 5 MILLIGRAM
     Dates: start: 20250922, end: 20250925

REACTIONS (2)
  - Angina unstable [Recovering/Resolving]
  - Haemobilia [Recovering/Resolving]

NARRATIVE: CASE EVENT DATE: 20250925
